FAERS Safety Report 23595771 (Version 1)
Quarter: 2024Q1

REPORT INFORMATION
  Report Type: Other
  Country: NL (occurrence: NL)
  Receive Date: 20240305
  Receipt Date: 20240305
  Transmission Date: 20240409
  Serious: Yes (Hospitalization, Other)
  Sender: FDA-Public Use
  Company Number: NL-Bion-012653

PATIENT
  Age: 25 Year
  Sex: Female

DRUGS (2)
  1. IBUPROFEN [Suspect]
     Active Substance: IBUPROFEN
     Indication: Myopericarditis
  2. COLCHICINE [Concomitant]
     Active Substance: COLCHICINE
     Indication: Myopericarditis

REACTIONS (3)
  - Eosinophilic pneumonia acute [Recovered/Resolved]
  - Pericardial effusion [Recovered/Resolved]
  - Drug ineffective for unapproved indication [Not Recovered/Not Resolved]
